FAERS Safety Report 5107011-1 (Version None)
Quarter: 2006Q3

REPORT INFORMATION
  Report Type: 
  Country: None (occurrence: None)
  Receive Date: 20060913
  Receipt Date: 20051020
  Transmission Date: 20061208
  Serious: Yes (Hospitalization)
  Sender: FDA-Public Use
  Company Number: 2005-10-1164

PATIENT
  Age: 19 Year
  Sex: Male

DRUGS (7)
  1. TEMOZOLOMIDE (S-P) (TEMOZOLOMIDE) [Suspect]
     Indication: EPENDYMOMA MALIGNANT
     Dosage: SEE IMAGE
     Route: 048
     Dates: start: 20050115, end: 20050119
  2. TEMOZOLOMIDE (S-P) (TEMOZOLOMIDE) [Suspect]
     Indication: EPENDYMOMA MALIGNANT
     Dosage: SEE IMAGE
     Route: 048
     Dates: start: 20050201, end: 20050201
  3. TEMOZOLOMIDE (S-P) (TEMOZOLOMIDE) [Suspect]
     Indication: EPENDYMOMA MALIGNANT
     Dosage: SEE IMAGE
     Route: 048
     Dates: start: 20050301, end: 20050301
  4. TEMOZOLOMIDE (S-P) (TEMOZOLOMIDE) [Suspect]
     Indication: EPENDYMOMA MALIGNANT
     Dosage: SEE IMAGE
     Route: 048
     Dates: start: 20050501, end: 20050501
  5. TEMOZOLOMIDE (S-P) (TEMOZOLOMIDE) [Suspect]
     Indication: EPENDYMOMA MALIGNANT
     Dosage: SEE IMAGE
     Route: 048
     Dates: start: 20050601, end: 20050601
  6. TEMOZOLOMIDE (S-P) (TEMOZOLOMIDE) [Suspect]
     Indication: EPENDYMOMA MALIGNANT
     Dosage: SEE IMAGE
     Route: 048
     Dates: start: 20050702, end: 20050706
  7. TEMOZOLOMIDE (S-P) (TEMOZOLOMIDE) [Suspect]
     Indication: EPENDYMOMA MALIGNANT
     Dosage: SEE IMAGE
     Route: 048
     Dates: start: 20050409

REACTIONS (1)
  - HEPATIC FUNCTION ABNORMAL [None]
